FAERS Safety Report 4297205-X (Version None)
Quarter: 2004Q1

REPORT INFORMATION
  Report Type: 
  Country: None (occurrence: None)
  Receive Date: 20040218
  Receipt Date: 20040209
  Transmission Date: 20041129
  Serious: Yes (Other)
  Sender: FDA-Public Use
  Company Number: PHFR2004GB00971

PATIENT
  Age: 44 Year
  Sex: Female

DRUGS (2)
  1. CARBAMAZEPINE [Suspect]
     Route: 065
  2. KEPPRA [Suspect]
     Dosage: 1000 MG/DAY
     Route: 065
     Dates: start: 20021204

REACTIONS (5)
  - ABNORMAL BEHAVIOUR [None]
  - DRUG INTERACTION [None]
  - GRAND MAL CONVULSION [None]
  - LEARNING DISORDER [None]
  - PSYCHOTIC DISORDER [None]
